FAERS Safety Report 10628994 (Version 1)
Quarter: 2014Q4

REPORT INFORMATION
  Report Type: Spontaneous
  Country: US (occurrence: US)
  Receive Date: 20141205
  Receipt Date: 20141205
  Transmission Date: 20150529
  Serious: No
  Sender: FDA-Public Use
  Company Number: US-BRISTOL-MYERS SQUIBB COMPANY-21548532

PATIENT
  Age: 85 Year
  Sex: Female
  Weight: 58.96 kg

DRUGS (3)
  1. COUMADIN [Suspect]
     Active Substance: WARFARIN SODIUM
  2. SYNTHROID [Concomitant]
     Active Substance: LEVOTHYROXINE SODIUM
  3. BENICAR [Concomitant]
     Active Substance: OLMESARTAN MEDOXOMIL

REACTIONS (2)
  - Diarrhoea [Unknown]
  - Vomiting [Unknown]
